FAERS Safety Report 5900907-X (Version None)
Quarter: 2008Q3

REPORT INFORMATION
  Report Type: 
  Country: None (occurrence: None)
  Receive Date: 20080929
  Receipt Date: 20080919
  Transmission Date: 20090109
  Serious: Yes (Other)
  Sender: FDA-Public Use
  Company Number: PHHY2008US22501

PATIENT

DRUGS (1)
  1. CLOZARIL [Suspect]
     Dosage: UNK

REACTIONS (4)
  - ELLIPTOCYTOSIS [None]
  - POLYCHROMASIA [None]
  - PUNCTATE BASOPHILIA [None]
  - RED BLOOD CELL ABNORMALITY [None]
